FAERS Safety Report 9426564 (Version 4)
Quarter: 2014Q1

REPORT INFORMATION
  Report Type: Report from Study
  Country: US (occurrence: US)
  Receive Date: 20130730
  Receipt Date: 20140318
  Transmission Date: 20141002
  Serious: Yes (Hospitalization, Other)
  Sender: FDA-Public Use
  Company Number: US-SANOFI-AVENTIS-2013SA075840

PATIENT
  Age: 41 Year
  Sex: Female
  Weight: 65.31 kg

DRUGS (11)
  1. AUBAGIO [Suspect]
     Indication: MULTIPLE SCLEROSIS
     Route: 048
     Dates: start: 20130211
  2. AUBAGIO [Suspect]
     Indication: MULTIPLE SCLEROSIS
     Route: 048
  3. CYMBALTA [Concomitant]
     Indication: ARTHRITIS
     Route: 065
  4. CYMBALTA [Concomitant]
     Indication: DEPRESSION
     Route: 065
  5. RITALIN [Concomitant]
     Indication: ATTENTION DEFICIT/HYPERACTIVITY DISORDER
     Route: 065
  6. OMEPRAZOLE [Concomitant]
     Indication: ABDOMINAL DISCOMFORT
     Route: 065
  7. VITAMIN D3 [Concomitant]
     Indication: VITAMIN D DECREASED
     Route: 065
  8. VITAMIN B12 [Concomitant]
     Indication: VITAMIN B12 DECREASED
     Route: 065
  9. TRAZODONE [Concomitant]
     Indication: SLEEP DISORDER
     Route: 065
  10. ZANAFLEX [Concomitant]
     Indication: MUSCLE SPASMS
     Route: 065
  11. CARBAMAZEPINE [Concomitant]
     Indication: NEURALGIA
     Route: 065

REACTIONS (22)
  - Gastritis [Recovering/Resolving]
  - Abdominal pain [Not Recovered/Not Resolved]
  - Migraine [Not Recovered/Not Resolved]
  - Gastroenteritis viral [Not Recovered/Not Resolved]
  - Diarrhoea [Unknown]
  - Nausea [Unknown]
  - Dehydration [Not Recovered/Not Resolved]
  - Rash [Unknown]
  - Toothache [Unknown]
  - Alopecia [Not Recovered/Not Resolved]
  - Spinal pain [Not Recovered/Not Resolved]
  - Sensation of heaviness [Not Recovered/Not Resolved]
  - Vision blurred [Not Recovered/Not Resolved]
  - Balance disorder [Not Recovered/Not Resolved]
  - Depression [Unknown]
  - Depressed mood [Unknown]
  - Multiple sclerosis relapse [Unknown]
  - Pain [Unknown]
  - Grip strength decreased [Unknown]
  - Hot flush [Unknown]
  - Contusion [Unknown]
  - Fatigue [Unknown]
